FAERS Safety Report 8590319 (Version 2)
Quarter: 2013Q2

REPORT INFORMATION
  Report Type: Spontaneous
  Country: US (occurrence: US)
  Receive Date: 20120601
  Receipt Date: 20130522
  Transmission Date: 20140414
  Serious: Yes (Other)
  Sender: FDA-Public Use
  Company Number: US-PFIZER INC-2012129116

PATIENT
  Age: 46 Year
  Sex: Male

DRUGS (2)
  1. CHANTIX [Suspect]
     Dosage: STARTING PACK, UNK
     Dates: start: 20090630
  2. CHANTIX [Suspect]
     Dosage: 0.5 MG, UNK
     Dates: start: 20100226, end: 20100326

REACTIONS (6)
  - Suicidal ideation [Unknown]
  - Depression [Unknown]
  - Homicidal ideation [Unknown]
  - Aggression [Unknown]
  - Anxiety [Unknown]
  - Abnormal dreams [Unknown]
